FAERS Safety Report 8984386 (Version 2)
Quarter: 2013Q1

REPORT INFORMATION
  Report Type: Spontaneous
  Country: US (occurrence: US)
  Receive Date: 20121226
  Receipt Date: 20130304
  Transmission Date: 20140127
  Serious: Yes (Life-Threatening, Hospitalization)
  Sender: FDA-Public Use
  Company Number: US-JNJFOC-20121207331

PATIENT
  Age: 43 None
  Sex: Male
  Weight: 106.14 kg

DRUGS (5)
  1. XARELTO [Suspect]
     Indication: DEEP VEIN THROMBOSIS
     Dosage: FOR 21 DAYS
     Route: 048
     Dates: start: 20121211, end: 201212
  2. IBUPROFEN [Concomitant]
     Indication: PAIN
     Route: 048
     Dates: start: 20121130, end: 20121211
  3. IBUPROFEN [Concomitant]
     Indication: ARTHRITIS
     Route: 048
     Dates: start: 20121130, end: 20121211
  4. CEPHALEXIN [Concomitant]
     Indication: CELLULITIS
     Route: 048
     Dates: start: 20121210, end: 20121220
  5. BYSTOLIC [Concomitant]
     Indication: HYPERTENSION
     Route: 065
     Dates: start: 201006

REACTIONS (2)
  - Pulmonary embolism [Recovering/Resolving]
  - Drug prescribing error [Unknown]
